FAERS Safety Report 10183722 (Version 2)
Quarter: 2014Q2

REPORT INFORMATION
  Report Type: Spontaneous
  Country: PK (occurrence: PK)
  Receive Date: 20140520
  Receipt Date: 20140530
  Transmission Date: 20141212
  Serious: Yes (Death)
  Sender: FDA-Public Use
  Company Number: PK-PFIZER INC-2014134106

PATIENT
  Age: 2 Year
  Sex: Female

DRUGS (3)
  1. LINCOCIN [Suspect]
     Indication: RESPIRATORY DISTRESS
     Dosage: 600 MG, UNK
     Route: 030
     Dates: start: 200103
  2. LINCOCIN [Suspect]
     Indication: RESPIRATORY TRACT INFECTION
  3. SOLU-CORTEF [Concomitant]
     Indication: RESPIRATORY DISTRESS
     Dosage: 1 ML, UNK

REACTIONS (1)
  - Respiratory distress [Fatal]
